FAERS Safety Report 8576176 (Version 3)
Quarter: 2012Q4

REPORT INFORMATION
  Report Type: 
  Country: RU (occurrence: RU)
  Receive Date: 20120523
  Receipt Date: 20120919
  Transmission Date: 20130627
  Serious: Yes (Hospitalization, Other)
  Sender: FDA-Public Use
  Company Number: RU-BAYER-2012-048916

PATIENT
  Age: 41 Year
  Sex: Female

DRUGS (3)
  1. MIRENA [Suspect]
     Indication: UTERINE LEIOMYOMA
     Dosage: UNK
     Route: 015
     Dates: start: 201102, end: 20120618
  2. MIRENA [Suspect]
     Indication: ENDOMETRIOSIS
  3. MESALAMINE [Suspect]
     Indication: COLITIS ULCERATIVE

REACTIONS (4)
  - Colitis ulcerative [Recovered/Resolved]
  - Vaginal haemorrhage [Recovered/Resolved]
  - Off label use [None]
  - Colitis ulcerative [None]
